FAERS Safety Report 4578281-3 (Version None)
Quarter: 2005Q1

REPORT INFORMATION
  Report Type: 
  Country: None (occurrence: None)
  Receive Date: 20050209
  Receipt Date: 20050202
  Transmission Date: 20050727
  Serious: Yes (Hospitalization)
  Sender: FDA-Public Use
  Company Number: 2005UW01877

PATIENT
  Age: 78 Year
  Sex: Male
  Weight: 102.05 kg

DRUGS (1)
  1. IRESSA [Suspect]
     Indication: LUNG NEOPLASM MALIGNANT

REACTIONS (5)
  - DIARRHOEA [None]
  - PNEUMONIA [None]
  - RASH [None]
  - TREMOR [None]
  - WEIGHT DECREASED [None]
